FAERS Safety Report 10725303 (Version 3)
Quarter: 2015Q2

REPORT INFORMATION
  Report Type: Spontaneous
  Country: JP (occurrence: JP)
  Receive Date: 20150120
  Receipt Date: 20150518
  Transmission Date: 20150821
  Serious: Yes (Hospitalization, Other)
  Sender: FDA-Public Use
  Company Number: JP-ROCHE-1523475

PATIENT
  Age: 67 Year
  Sex: Male
  Weight: 62 kg

DRUGS (12)
  1. 5-FU [Suspect]
     Active Substance: FLUOROURACIL
     Indication: RECTAL CANCER METASTATIC
     Dosage: MOST RECENT DOSE 19/DEC/2014
     Route: 040
     Dates: start: 20140829
  2. RISPERDAL [Suspect]
     Active Substance: RISPERIDONE
     Indication: SCHIZOPHRENIA
     Route: 048
  3. 5-FU [Suspect]
     Active Substance: FLUOROURACIL
     Dosage: MOST RECENT DOSE 19/DEC/2014
     Route: 041
     Dates: start: 20140829
  4. DEPAKENE [Suspect]
     Active Substance: VALPROIC ACID
     Indication: SCHIZOPHRENIA
     Route: 048
  5. METHYCOBAL [Suspect]
     Active Substance: METHYLCOBALAMIN
     Indication: NEUROPATHY PERIPHERAL
     Route: 048
  6. SILECE [Suspect]
     Active Substance: FLUNITRAZEPAM
     Indication: SCHIZOPHRENIA
     Route: 048
  7. AVASTIN [Suspect]
     Active Substance: BEVACIZUMAB
     Indication: RECTAL CANCER METASTATIC
     Dosage: MOST RECENT DOSE ON 19/DEC/2014.
     Route: 041
     Dates: start: 20140829
  8. CALCIUM LEVOFOLINATE [Suspect]
     Active Substance: LEVOLEUCOVORIN CALCIUM
     Indication: RECTAL CANCER METASTATIC
     Dosage: MOST RECENT DOSE ON 19/DEC/2014
     Route: 041
     Dates: start: 20140829
  9. ADOAIR [Suspect]
     Active Substance: FLUTICASONE PROPIONATE\SALMETEROL XINAFOATE
     Indication: PRODUCT USED FOR UNKNOWN INDICATION
     Dosage: DOSAGE IS UNCERTAIN.
     Route: 055
  10. DORAL [Suspect]
     Active Substance: QUAZEPAM
     Indication: SCHIZOPHRENIA
     Route: 048
  11. DEPAS [Suspect]
     Active Substance: ETIZOLAM
     Indication: SCHIZOPHRENIA
     Route: 048
  12. ELPLAT [Suspect]
     Active Substance: OXALIPLATIN
     Indication: RECTAL CANCER METASTATIC
     Dosage: MOST RECENT DOSE ON 19/DEC/2014
     Route: 041
     Dates: start: 20140829

REACTIONS (1)
  - Rhabdomyolysis [Recovered/Resolved]

NARRATIVE: CASE EVENT DATE: 20141230
